FAERS Safety Report 8927190 (Version 1)
Quarter: 2012Q4

REPORT INFORMATION
  Report Type: 
  Country: GB (occurrence: GB)
  Receive Date: 20121127
  Receipt Date: 20121127
  Transmission Date: 20130627
  Serious: Yes (Hospitalization)
  Sender: FDA-Public Use
  Company Number: GB-TEVA-371681ISR

PATIENT
  Age: 24 Year
  Sex: Male

DRUGS (2)
  1. LAMOTRIGINE [Suspect]
     Indication: EPILEPSY
     Dosage: 400 Milligram Daily;
  2. CLOBAZAM [Suspect]
     Indication: EPILEPTIC AURA
     Route: 065

REACTIONS (4)
  - Epilepsy [Unknown]
  - Feeling of despair [Unknown]
  - Suicide attempt [Unknown]
  - Intentional overdose [Unknown]
